FAERS Safety Report 4364196-2 (Version None)
Quarter: 2004Q2

REPORT INFORMATION
  Report Type: 
  Country: None (occurrence: None)
  Receive Date: 20040517
  Receipt Date: 20040301
  Transmission Date: 20050107
  Serious: No
  Sender: FDA-Public Use
  Company Number: S04-USA-01108-01

PATIENT
  Age: 92 Year
  Sex: Female

DRUGS (12)
  1. NAMENDA [Suspect]
     Indication: DEMENTIA ALZHEIMER'S TYPE
     Dosage: 10 MG BID PO
     Route: 048
     Dates: end: 20040201
  2. NAMENDA [Suspect]
     Indication: DEMENTIA ALZHEIMER'S TYPE
     Dosage: 5 MG QD PO
     Route: 048
     Dates: start: 20040201
  3. NAMENDA [Suspect]
     Indication: DEMENTIA ALZHEIMER'S TYPE
     Dosage: 5 MG QD PO
     Route: 048
     Dates: start: 20031201
  4. NAMENDA [Suspect]
     Indication: DEMENTIA ALZHEIMER'S TYPE
     Dosage: 10 MG QD PO
     Route: 048
  5. NAMENDA [Suspect]
     Indication: DEMENTIA ALZHEIMER'S TYPE
     Dosage: 15 MG QD PO
     Route: 048
  6. FOLIC ACID [Concomitant]
  7. B COMPLEX VITAMIN (VITAMIN B COMPLEX) [Concomitant]
  8. NIFEREX (POLYSACCHARIDE-IRON COMPLEX) [Concomitant]
  9. PREVACID [Concomitant]
  10. ALTACE [Concomitant]
  11. CARAFATE [Concomitant]
  12. ACETAMINOPHEN [Concomitant]

REACTIONS (1)
  - HAEMATOCHEZIA [None]
